FAERS Safety Report 7894379-6 (Version None)
Quarter: 2011Q4

REPORT INFORMATION
  Report Type: 
  Country: None (occurrence: None)
  Receive Date: 20111104
  Receipt Date: 20111031
  Transmission Date: 20120403
  Serious: Yes (Life-Threatening, Hospitalization, Other)
  Sender: FDA-Public Use
  Company Number: US-ASTRAZENECA-2010SE42407

PATIENT
  Age: 60 Year
  Sex: Female

DRUGS (10)
  1. SEROQUEL XR [Suspect]
     Indication: DEPRESSION
     Route: 048
     Dates: start: 20060101
  2. LITHIUM CITRATE [Concomitant]
  3. SEROQUEL XR [Suspect]
     Route: 048
  4. SEROQUEL XR [Suspect]
     Indication: ANXIETY
     Route: 048
     Dates: start: 20060101
  5. SEROQUEL XR [Suspect]
     Route: 048
  6. SEROQUEL XR [Suspect]
     Route: 048
  7. ATIVAN [Concomitant]
  8. PROZAC [Concomitant]
  9. TRILAFON [Concomitant]
  10. SEROQUEL XR [Suspect]
     Route: 048

REACTIONS (8)
  - FALL [None]
  - BONE DISORDER [None]
  - COMA [None]
  - ANXIETY [None]
  - LOWER LIMB FRACTURE [None]
  - PNEUMONIA ASPIRATION [None]
  - CONVULSION [None]
  - DRUG DOSE OMISSION [None]
